FAERS Safety Report 10406743 (Version 1)
Quarter: 2014Q3

REPORT INFORMATION
  Report Type: Spontaneous
  Country: US (occurrence: US)
  Receive Date: 20140825
  Receipt Date: 20140825
  Transmission Date: 20150326
  Serious: Yes (Other)
  Sender: FDA-Public Use
  Company Number: US-BAYER-2014-124156

PATIENT
  Age: 23 Year
  Sex: Female
  Weight: 81.63 kg

DRUGS (2)
  1. MIRENA [Suspect]
     Active Substance: LEVONORGESTREL
     Indication: CONTRACEPTION
     Dosage: 20 MCG/24HR, CONT
     Route: 015
     Dates: start: 201207
  2. MIRENA [Suspect]
     Active Substance: LEVONORGESTREL
     Indication: CONTRACEPTION
     Dosage: 20 UNK, CONT
     Route: 015
     Dates: start: 200905, end: 201012

REACTIONS (8)
  - Device issue [None]
  - Pain [None]
  - Emotional distress [None]
  - Device dislocation [None]
  - Pregnancy with contraceptive device [None]
  - Anxiety [None]
  - Depression [None]
  - Drug ineffective [None]

NARRATIVE: CASE EVENT DATE: 201204
